FAERS Safety Report 13631725 (Version 1)
Quarter: 2017Q2

REPORT INFORMATION
  Report Type: Report from Study
  Country: US (occurrence: US)
  Receive Date: 20170608
  Receipt Date: 20170608
  Transmission Date: 20170830
  Serious: Yes (Death, Hospitalization)
  Sender: FDA-Public Use
  Company Number: US-ACTELION-A-US2017-148100

PATIENT
  Age: 56 Year
  Sex: Female
  Weight: 92.97 kg

DRUGS (4)
  1. SILDENAFIL CITRATE. [Concomitant]
     Active Substance: SILDENAFIL CITRATE
  2. VELETRI [Suspect]
     Active Substance: EPOPROSTENOL
     Dosage: 12.2 NG/KG, PER MIN
     Route: 042
  3. VELETRI [Suspect]
     Active Substance: EPOPROSTENOL
     Indication: PULMONARY HYPERTENSION
     Dosage: 8.9 NG/KG, PER MIN
     Route: 042
     Dates: start: 20160902
  4. OPSUMIT [Concomitant]
     Active Substance: MACITENTAN
     Indication: PULMONARY HYPERTENSION
     Route: 048

REACTIONS (10)
  - Unevaluable event [Unknown]
  - Dyspnoea [Unknown]
  - Dyspnoea exertional [Unknown]
  - Decreased appetite [Unknown]
  - Loss of personal independence in daily activities [Unknown]
  - Fluid retention [Unknown]
  - Pain in jaw [Recovered/Resolved]
  - Abdominal distension [Unknown]
  - Insomnia [Unknown]
  - Death [Fatal]

NARRATIVE: CASE EVENT DATE: 20170517
